FAERS Safety Report 6922971-1 (Version None)
Quarter: 2010Q3

REPORT INFORMATION
  Report Type: 
  Country: None (occurrence: None)
  Receive Date: 20100813
  Receipt Date: 20100806
  Transmission Date: 20110219
  Serious: Yes (Other)
  Sender: FDA-Public Use
  Company Number: DE-TEVA-244029ISR

PATIENT
  Sex: Male
  Weight: 70 kg

DRUGS (2)
  1. GEMCITABINE [Suspect]
     Indication: PANCREATIC CARCINOMA
     Route: 042
     Dates: start: 20100531
  2. ERLOTINIB HYDROCHLORIDE [Suspect]
     Indication: PANCREATIC CARCINOMA
     Route: 048
     Dates: start: 20100531

REACTIONS (2)
  - BLOOD CREATINE PHOSPHOKINASE [None]
  - RHABDOMYOLYSIS [None]
